FAERS Safety Report 8041889-7 (Version None)
Quarter: 2012Q1

REPORT INFORMATION
  Report Type: 
  Country: None (occurrence: None)
  Receive Date: 20120112
  Receipt Date: 20120112
  Transmission Date: 20120608
  Serious: No
  Sender: FDA-Public Use
  Company Number: None

PATIENT
  Sex: Female
  Weight: 52.163 kg

DRUGS (2)
  1. ACETAMINOPHEN [Suspect]
     Indication: PYREXIA
     Dates: start: 20120110, end: 20120111
  2. ACETAMINOPHEN [Suspect]
     Indication: IMMUNISATION REACTION
     Dates: start: 20120110, end: 20120111

REACTIONS (3)
  - DRUG LABEL CONFUSION [None]
  - MEDICATION ERROR [None]
  - INTERCEPTED DRUG DISPENSING ERROR [None]
